FAERS Safety Report 5573594-0 (Version None)
Quarter: 2007Q4

REPORT INFORMATION
  Report Type: 
  Country: None (occurrence: None)
  Receive Date: 20071226
  Receipt Date: 20071213
  Transmission Date: 20080405
  Serious: Yes (Other)
  Sender: FDA-Public Use
  Company Number: DE-GENENTECH-251466

PATIENT
  Sex: Female

DRUGS (1)
  1. LUCENTIS [Suspect]
     Indication: MACULAR DEGENERATION
     Dosage: 1 DF, UNK
     Route: 031
     Dates: start: 20071024

REACTIONS (4)
  - CHARLES BONNET SYNDROME [None]
  - DIZZINESS [None]
  - NAUSEA [None]
  - VISUAL DISTURBANCE [None]
